FAERS Safety Report 8199330-X (Version None)
Quarter: 2012Q1

REPORT INFORMATION
  Report Type: 
  Country: None (occurrence: None)
  Receive Date: 20120309
  Receipt Date: 20120306
  Transmission Date: 20120608
  Serious: Yes (Death, Hospitalization, Other)
  Sender: FDA-Public Use
  Company Number: US-BAYER-200940678NA

PATIENT
  Age: 63 Year
  Sex: Male
  Weight: 89 kg

DRUGS (25)
  1. PROTAMINE SULFATE [Concomitant]
  2. CONTRAST MEDIA [Concomitant]
     Indication: ARTERIOGRAM CORONARY
  3. LEVAQUIN [Concomitant]
     Dosage: 500 MG, FIRST DAY
     Dates: start: 20070508
  4. TRASYLOL [Suspect]
     Indication: AORTIC VALVE REPLACEMENT
     Dosage: LOADING DOSE: 200CC FOLLOWED BY 50CC/HR
     Route: 042
     Dates: start: 20070424, end: 20070424
  5. CONTRAST MEDIA [Concomitant]
     Indication: CATHETERISATION CARDIAC
     Dosage: UNK
     Dates: start: 20070328
  6. BUMEX [Concomitant]
     Dosage: UNK
     Route: 042
     Dates: start: 20070424
  7. VANCOMYCIN [Concomitant]
  8. CORDARONE [Concomitant]
     Dosage: 200 MG, BID
     Route: 048
  9. FLONASE [Concomitant]
     Route: 048
  10. HEPARIN [Concomitant]
     Dosage: UNK
     Route: 042
     Dates: start: 20070424
  11. CARDIOPLEGIA [Concomitant]
  12. FRESH FROZEN PLASMA [Concomitant]
     Dosage: UNK
     Dates: start: 20070427
  13. TRASYLOL [Suspect]
     Dosage: TEST DOSE: 1ML
  14. DIOVAN [Concomitant]
     Dosage: 12.5 MG, BID
     Route: 048
  15. CHANTIX [Concomitant]
     Dosage: 1 MG, BID
     Route: 048
  16. ANTIVERT [Concomitant]
     Dosage: 25 MG, TID
     Route: 048
  17. CONTRAST MEDIA [Concomitant]
     Indication: ANGIOGRAM
  18. LEVAQUIN [Concomitant]
     Dosage: 200 MG, QD
  19. FENTANYL [Concomitant]
     Dosage: UNK
     Route: 042
     Dates: start: 20070424
  20. LABETALOL HCL [Concomitant]
     Dosage: 100 MG, UNK
     Route: 048
     Dates: start: 20070328
  21. ASPIRIN [Concomitant]
     Dosage: 325 MG
     Route: 048
  22. CONTRAST MEDIA [Concomitant]
     Indication: CARDIAC VENTRICULOGRAM LEFT
  23. DOPAMINE HCL [Concomitant]
     Indication: BLOOD PRESSURE MANAGEMENT
  24. RED BLOOD CELLS, CONCENTRATED [Concomitant]
     Dosage: UNK
     Dates: start: 20070424
  25. NAPROSYN [Concomitant]
     Dosage: 550 MG, BID
     Route: 048

REACTIONS (13)
  - MULTI-ORGAN FAILURE [None]
  - STRESS [None]
  - INJURY [None]
  - ANXIETY [None]
  - ANHEDONIA [None]
  - RENAL INJURY [None]
  - FEAR [None]
  - RENAL IMPAIRMENT [None]
  - DEATH [None]
  - EMOTIONAL DISTRESS [None]
  - RENAL FAILURE [None]
  - UNEVALUABLE EVENT [None]
  - PAIN [None]
